FAERS Safety Report 8037363-4 (Version None)
Quarter: 2012Q1

REPORT INFORMATION
  Report Type: 
  Country: None (occurrence: None)
  Receive Date: 20120105
  Receipt Date: 20111226
  Transmission Date: 20120608
  Serious: Yes (Other)
  Sender: FDA-Public Use
  Company Number: 2011SP0413209

PATIENT
  Age: 76 Year
  Sex: Male
  Weight: 56.8 kg

DRUGS (4)
  1. REBETOL [Suspect]
     Indication: HEPATITIS C
     Dosage: 600 MG;QD;PO
     Route: 048
     Dates: start: 20100930, end: 20101013
  2. INTERFERON BETA NOS [Suspect]
     Indication: HEPATITIS C
     Dosage: 3 MIU;BID;INDRP
     Route: 041
     Dates: start: 20100930, end: 20101013
  3. VOLTAREN [Concomitant]
  4. PROMACTA [Concomitant]

REACTIONS (1)
  - PROTEINURIA [None]
